FAERS Safety Report 6345282-4 (Version None)
Quarter: 2009Q3

REPORT INFORMATION
  Report Type: 
  Country: None (occurrence: None)
  Receive Date: 20090821
  Receipt Date: 20090713
  Transmission Date: 20100115
  Serious: No
  Sender: FDA-Public Use
  Company Number: 8048346

PATIENT
  Age: 46 Year
  Sex: Female

DRUGS (3)
  1. CIMZIA [Suspect]
     Dosage: 400 MG/M SC
     Route: 058
     Dates: start: 20090506
  2. PREDNIZOLON [Concomitant]
  3. ASPIRIN [Concomitant]

REACTIONS (5)
  - JOINT WARMTH [None]
  - OEDEMA PERIPHERAL [None]
  - PAIN [None]
  - PARAESTHESIA [None]
  - PEDAL PULSE ABNORMAL [None]
